FAERS Safety Report 5170524-0 (Version None)
Quarter: 2006Q4

REPORT INFORMATION
  Report Type: 
  Country: None (occurrence: None)
  Receive Date: 20061204
  Receipt Date: 20061128
  Transmission Date: 20070319
  Serious: Yes (Other)
  Sender: FDA-Public Use
  Company Number: 2006AP001047

PATIENT
  Sex: Female

DRUGS (8)
  1. PAROXETINE HCL [Suspect]
     Indication: DEPRESSION
     Dosage: 20 MG; PO; QD
     Route: 048
  2. PROPRANOLOL [Concomitant]
  3. ZOPICLONE [Concomitant]
  4. ALIMEMAZINE TARTRATE [Concomitant]
  5. SEROXAT ^SMITHKLINE BEECHAM^ (PAROXETINE HYDROCHLORIDE) [Suspect]
     Indication: DEPRESSION
     Dosage: 20 MG; PO; QD
     Route: 048
     Dates: start: 19890819, end: 19981001
  6. SEROXAT ^SMITHKLINE BEECHAM^ (PAROXETINE HYDROCHLORIDE) [Suspect]
     Indication: DEPRESSION
     Dosage: 20 MG; PO; QD
     Route: 048
     Dates: start: 19981015, end: 19981101
  7. SEROXAT ^SMITHKLINE BEECHAM^ (PAROXETINE HYDROCHLORIDE) [Suspect]
     Indication: DEPRESSION
     Dosage: 20 MG; PO; QD
     Route: 048
     Dates: start: 19990301, end: 20000928
  8. SEROXAT ^SMITHKLINE BEECHAM^ (PAROXETINE HYDROCHLORIDE) [Suspect]
     Indication: DEPRESSION
     Dosage: 20 MG; PO; QD
     Route: 048
     Dates: start: 20010130

REACTIONS (13)
  - AGITATION [None]
  - DIZZINESS [None]
  - DRUG EXPOSURE DURING PREGNANCY [None]
  - DRUG WITHDRAWAL SYNDROME [None]
  - HEADACHE [None]
  - INSOMNIA [None]
  - IRRITABILITY [None]
  - NAUSEA [None]
  - PANIC ATTACK [None]
  - PREGNANCY [None]
  - SOMNOLENCE [None]
  - SUICIDAL IDEATION [None]
  - VOMITING [None]
